FAERS Safety Report 7030955-0 (Version None)
Quarter: 2010Q4

REPORT INFORMATION
  Report Type: 
  Country: None (occurrence: None)
  Receive Date: 20101006
  Receipt Date: 20091001
  Transmission Date: 20110411
  Serious: No
  Sender: FDA-Public Use
  Company Number: US-BRISTOL-MYERS SQUIBB COMPANY-14769392

PATIENT
  Age: 57 Year
  Sex: Female

DRUGS (3)
  1. KENALOG-40 [Suspect]
     Indication: INFLAMMATION
     Route: 042
     Dates: start: 20090901
  2. LOVENOX [Concomitant]
     Route: 058
  3. MORPHINE [Concomitant]
     Route: 042

REACTIONS (2)
  - INCORRECT ROUTE OF DRUG ADMINISTRATION [None]
  - NO ADVERSE EVENT [None]
